FAERS Safety Report 4592940-8 (Version None)
Quarter: 2005Q1

REPORT INFORMATION
  Report Type: 
  Country: None (occurrence: None)
  Receive Date: 20050125
  Receipt Date: 20041008
  Transmission Date: 20050727
  Serious: No
  Sender: FDA-Public Use
  Company Number: USA040875883

PATIENT
  Age: 86 Year
  Sex: Female
  Weight: 52 kg

DRUGS (10)
  1. FORTEO [Suspect]
     Indication: OSTEOPOROSIS
     Dosage: 20 UG/1 DAY
     Dates: start: 20040816, end: 20040819
  2. LIPITOR [Concomitant]
  3. ATENOLOL [Concomitant]
  4. BENAZEPRIL HCL [Concomitant]
  5. MULTIVITAMIN [Concomitant]
  6. CALCIUM GLUCONATE [Concomitant]
  7. VITAMIN D [Concomitant]
  8. ASPIRIN [Concomitant]
  9. TEMAZEPAM [Concomitant]
  10. ALPRAZOLAM [Concomitant]

REACTIONS (2)
  - MUSCLE SPASMS [None]
  - PERIPHERAL COLDNESS [None]
